FAERS Safety Report 18449924 (Version 2)
Quarter: 2021Q2

REPORT INFORMATION
  Report Type: Spontaneous
  Country: PL (occurrence: PL)
  Receive Date: 20201102
  Receipt Date: 20210601
  Transmission Date: 20210717
  Serious: Yes (Other)
  Sender: FDA-Public Use
  Company Number: PL-ADVANZ PHARMA-202003001972

PATIENT

DRUGS (3)
  1. VESTIBO [Concomitant]
     Indication: BALANCE DISORDER
     Dosage: UNK
     Dates: start: 2014
  2. HYDROXYCHLOROQUINE SULFATE (AUTHORIZED GENERIC),PLAQUENIL [Suspect]
     Active Substance: HYDROXYCHLOROQUINE SULFATE
     Indication: SYSTEMIC LUPUS ERYTHEMATOSUS
     Dosage: 1 DOSAGE FORM
     Route: 048
  3. CONCOR COR [Concomitant]
     Active Substance: BISOPROLOL FUMARATE
     Indication: CARDIAC DISORDER
     Dosage: UNK

REACTIONS (5)
  - Exposure during pregnancy [Unknown]
  - Placenta praevia [Unknown]
  - Systemic lupus erythematosus [Unknown]
  - Stillbirth [Unknown]
  - Condition aggravated [Unknown]

NARRATIVE: CASE EVENT DATE: 20210211
